FAERS Safety Report 7642179-4 (Version None)
Quarter: 2011Q3

REPORT INFORMATION
  Report Type: 
  Country: None (occurrence: None)
  Receive Date: 20110728
  Receipt Date: 20110721
  Transmission Date: 20111222
  Serious: Yes (Other)
  Sender: FDA-Public Use
  Company Number: US-GENZYME-RENA-1001263

PATIENT
  Age: 85 Year
  Sex: Female

DRUGS (1)
  1. RENVELA [Suspect]
     Indication: HYPERPHOSPHATAEMIA
     Dosage: 1.6 G, TID
     Dates: start: 20110601

REACTIONS (1)
  - CEREBROVASCULAR ACCIDENT [None]
